FAERS Safety Report 5264880-2 (Version None)
Quarter: 2007Q1

REPORT INFORMATION
  Report Type: 
  Country: None (occurrence: None)
  Receive Date: 20070314
  Receipt Date: 20070227
  Transmission Date: 20070707
  Serious: Yes (Hospitalization)
  Sender: FDA-Public Use
  Company Number: US-AMGEN-US212953

PATIENT
  Sex: Female

DRUGS (1)
  1. ENBREL [Suspect]
     Indication: ANKYLOSING SPONDYLITIS
     Route: 058
     Dates: start: 20030615

REACTIONS (4)
  - ANKYLOSING SPONDYLITIS [None]
  - GALLBLADDER OPERATION [None]
  - GUILLAIN-BARRE SYNDROME [None]
  - MYOCARDIAL INFARCTION [None]
